FAERS Safety Report 6982261-8 (Version None)
Quarter: 2010Q3

REPORT INFORMATION
  Report Type: 
  Country: None (occurrence: None)
  Receive Date: 20100914
  Receipt Date: 20091231
  Transmission Date: 20110219
  Serious: No
  Sender: FDA-Public Use
  Company Number: US-PFIZER INC-2010000347

PATIENT
  Sex: Male
  Weight: 90.7 kg

DRUGS (3)
  1. LYRICA [Suspect]
     Indication: HERPES ZOSTER
     Dosage: UNK
     Dates: start: 20091228, end: 20091228
  2. VALTREX [Concomitant]
  3. PREDNISONE [Concomitant]
     Dosage: UNK

REACTIONS (1)
  - HEADACHE [None]
